FAERS Safety Report 7243483-4 (Version None)
Quarter: 2011Q1

REPORT INFORMATION
  Report Type: 
  Country: None (occurrence: None)
  Receive Date: 20110119
  Receipt Date: 20110119
  Transmission Date: 20110831
  Serious: Yes (Life-Threatening, Hospitalization)
  Sender: FDA-Public Use
  Company Number: None

PATIENT
  Age: 25 Year
  Sex: Female
  Weight: 56.246 kg

DRUGS (3)
  1. IMODIUM MULTI-SYMPTOM RELIEF [Concomitant]
  2. ZOFRAN [Concomitant]
  3. TYLENOL COLD MULTISYMPTOM SEVERE MCNEIL CONSUMER HEALTHCARE [Suspect]
     Indication: PYREXIA
     Dosage: 2 COOLBURST CAPLETS ONCE PO
     Route: 048
     Dates: start: 20101025, end: 20101025

REACTIONS (3)
  - ANAPHYLACTIC REACTION [None]
  - BLOOD PRESSURE DECREASED [None]
  - DRUG INTERACTION [None]
